FAERS Safety Report 7941632-3 (Version None)
Quarter: 2011Q4

REPORT INFORMATION
  Report Type: 
  Country: None (occurrence: None)
  Receive Date: 20111128
  Receipt Date: 20110929
  Transmission Date: 20120403
  Serious: No
  Sender: FDA-Public Use
  Company Number: US-BAYER-2011-094902

PATIENT
  Age: 23 Year
  Sex: Female

DRUGS (4)
  1. ALEVE (CAPLET) [Suspect]
     Indication: MUSCLE SPASMS
  2. ACETAMINOPHEN [Concomitant]
  3. ALEVE (CAPLET) [Suspect]
     Indication: DYSMENORRHOEA
  4. IBUPROFEN (ADVIL) [Concomitant]

REACTIONS (2)
  - MUSCLE SPASMS [None]
  - DYSMENORRHOEA [None]
